FAERS Safety Report 4411149-1 (Version None)
Quarter: 2004Q2

REPORT INFORMATION
  Report Type: 
  Country: None (occurrence: None)
  Receive Date: 20040630
  Receipt Date: 20040305
  Transmission Date: 20050107
  Serious: No
  Sender: FDA-Public Use
  Company Number: 03P-163-0244049-00

PATIENT
  Age: 62 Year
  Sex: Female
  Weight: 57.1532 kg

DRUGS (14)
  1. HUMIRA [Suspect]
     Indication: RHEUMATOID ARTHRITIS
     Dosage: 40 MG, 1 IN 2 WK, SUBCUTANEOUS
     Route: 058
     Dates: start: 20030101, end: 20031126
  2. NSAID'S [Concomitant]
  3. CONJUGATED ESTROGEN [Concomitant]
  4. LEVOTHYROXINE SODIUM [Concomitant]
  5. METHOTREXATE [Concomitant]
  6. PREDNISONE TAB [Concomitant]
  7. FOLIC ACID [Concomitant]
  8. GLUCOSAMINE [Concomitant]
  9. CALCIUM [Concomitant]
  10. CYANOCOBALAMIN [Concomitant]
  11. OMEPRAZOLE [Concomitant]
  12. ASPIRIN [Concomitant]
  13. DIOVAN [Concomitant]
  14. MULTI-VITAMINS [Concomitant]

REACTIONS (1)
  - NUCLEAR MAGNETIC RESONANCE IMAGING ABNORMAL [None]
